FAERS Safety Report 8825363 (Version 1)
Quarter: 2012Q4

REPORT INFORMATION
  Report Type: 
  Country: US (occurrence: US)
  Receive Date: 20121004
  Receipt Date: 20121004
  Transmission Date: 20130627
  Serious: Yes (Hospitalization, Other)
  Sender: FDA-Public Use
  Company Number: US-ROCHE-1131662

PATIENT
  Sex: Female

DRUGS (15)
  1. RITUXAN [Suspect]
     Indication: WALDENSTROM^S MACROGLOBULINAEMIA
     Route: 065
     Dates: start: 20000616
  2. RITUXAN [Suspect]
     Route: 065
     Dates: start: 20000623
  3. RITUXAN [Suspect]
     Route: 065
     Dates: start: 20000630
  4. BENADRYL [Concomitant]
     Dosage: 50/2
     Route: 065
     Dates: start: 20000616
  5. BENADRYL [Concomitant]
     Dosage: 50/2
     Route: 065
     Dates: start: 20000623
  6. BENADRYL [Concomitant]
     Dosage: 50/2
     Route: 065
     Dates: start: 20000630
  7. BENADRYL [Concomitant]
     Dosage: 50/2
     Route: 065
     Dates: start: 20000712
  8. TYLENOL [Concomitant]
     Dosage: 50/2
     Route: 065
     Dates: start: 20000616
  9. TYLENOL [Concomitant]
     Dosage: 50/2
     Route: 065
     Dates: start: 20000623
  10. TYLENOL [Concomitant]
     Dosage: 50/2
     Route: 065
     Dates: start: 20000630
  11. TYLENOL [Concomitant]
     Dosage: 50/2
     Route: 065
     Dates: start: 20000712
  12. LEVAQUIN [Concomitant]
  13. AMPICILINA [Concomitant]
  14. SYNTHROID [Concomitant]
     Route: 065
  15. ZOLOFT [Concomitant]

REACTIONS (6)
  - Fall [Unknown]
  - Dementia [Unknown]
  - Hypothyroidism [Unknown]
  - Blood culture positive [Unknown]
  - Pyuria [Unknown]
  - Partial seizures [Unknown]
